FAERS Safety Report 23444975 (Version 2)
Quarter: 2024Q1

REPORT INFORMATION
  Report Type: Report from Study
  Country: IT (occurrence: IT)
  Receive Date: 20240125
  Receipt Date: 20240206
  Transmission Date: 20240410
  Serious: Yes (Other)
  Sender: FDA-Public Use
  Company Number: None

PATIENT
  Age: 77 Year
  Sex: Male

DRUGS (4)
  1. CYRAMZA [Suspect]
     Active Substance: RAMUCIRUMAB
     Indication: Gastric cancer
     Dosage: 480 MG, CYCLICAL (THERAPY G1, 8, 15 - CYCLE II G8)
     Route: 042
     Dates: start: 20230419
  2. CYRAMZA [Suspect]
     Active Substance: RAMUCIRUMAB
     Dosage: 480 MG, CYCLICAL (THERAPY G1, 8, 15 - CYCLE II G8)
     Route: 042
     Dates: start: 20230517, end: 20230517
  3. PACLITAXEL [Suspect]
     Active Substance: PACLITAXEL
     Indication: Gastric cancer
     Dosage: 100 MG, CYCLICAL (THERAPY G1, 8, 15, CIYCLE II G8)
     Route: 042
     Dates: start: 20230419
  4. PACLITAXEL [Suspect]
     Active Substance: PACLITAXEL
     Dosage: 100 MG, CYCLICAL (THERAPY G1, 8, 15, CIYCLE II G8)
     Route: 042
     Dates: start: 20230524, end: 20230524

REACTIONS (3)
  - Azotaemia [Recovering/Resolving]
  - Neutropenia [Recovering/Resolving]
  - Gamma-glutamyltransferase increased [Recovering/Resolving]

NARRATIVE: CASE EVENT DATE: 20230601
